FAERS Safety Report 15747341 (Version 1)
Quarter: 2018Q4

REPORT INFORMATION
  Report Type: Spontaneous
  Country: US (occurrence: US)
  Receive Date: 20181220
  Receipt Date: 20181220
  Transmission Date: 20190205
  Serious: No
  Sender: FDA-Public Use
  Company Number: US-AVADEL SPECIALTY PHARMACEUTICALS, LLC-2018AVA00366

PATIENT
  Sex: Male
  Weight: 61.22 kg

DRUGS (5)
  1. NOCTIVA [Suspect]
     Active Substance: DESMOPRESSIN ACETATE
     Dosage: 1.66 ?G, 1X/DAY
  2. NOCTIVA [Suspect]
     Active Substance: DESMOPRESSIN ACETATE
     Dosage: 0.83 ?G, 1X/DAY
     Route: 045
     Dates: start: 2018
  3. WELLBUTRIN [Concomitant]
     Active Substance: BUPROPION HYDROCHLORIDE
  4. OTC ALLERGY MEDICATION [Concomitant]
  5. ^STUFF TO SLEEP^ [Concomitant]

REACTIONS (2)
  - Parosmia [Unknown]
  - Upper-airway cough syndrome [Unknown]
